FAERS Safety Report 16652437 (Version 1)
Quarter: 2019Q3

REPORT INFORMATION
  Report Type: Report from Study
  Country: US (occurrence: US)
  Receive Date: 20190731
  Receipt Date: 20190731
  Transmission Date: 20191004
  Serious: Yes (Hospitalization, Other)
  Sender: FDA-Public Use
  Company Number: US-MALLINCKRODT-T201904784

PATIENT
  Age: 1 Year
  Sex: Female
  Weight: 13 kg

DRUGS (3)
  1. REPOSITORY CORTICOTROPIN INJECTION [Suspect]
     Active Substance: CORTICOTROPIN
     Indication: INFANTILE SPASMS
     Dosage: 0.6 CC, DAILY FOR 3 DAYS, THEN 0.5 CC
     Route: 030
     Dates: start: 20190626, end: 201906
  2. REPOSITORY CORTICOTROPIN INJECTION [Suspect]
     Active Substance: CORTICOTROPIN
     Dosage: 75 UNITS, BID (TWICE A DAY)
     Route: 030
     Dates: start: 20190627, end: 2019
  3. REPOSITORY CORTICOTROPIN INJECTION [Suspect]
     Active Substance: CORTICOTROPIN
     Dosage: 0.53 ML (42.4 UNITS), TWICE DAILY. DAY 15 TO 17: 0.2 ML (16 UNITS)
     Route: 030
     Dates: start: 201907

REACTIONS (3)
  - Tachycardia [Not Recovered/Not Resolved]
  - Therapeutic product effect incomplete [Unknown]
  - Blood pressure increased [Unknown]

NARRATIVE: CASE EVENT DATE: 201906
